FAERS Safety Report 5361941-4 (Version None)
Quarter: 2007Q2

REPORT INFORMATION
  Report Type: 
  Country: None (occurrence: None)
  Receive Date: 20070619
  Receipt Date: 20070613
  Transmission Date: 20071010
  Serious: Yes (Hospitalization)
  Sender: FDA-Public Use
  Company Number: ES-AVENTIS-200712952EU

PATIENT
  Age: 70 Year
  Sex: Male

DRUGS (1)
  1. ENOXAPARIN SODIUM [Suspect]
     Route: 058
     Dates: start: 20060704, end: 20060716

REACTIONS (1)
  - WOUND NECROSIS [None]
